FAERS Safety Report 8020219-0 (Version None)
Quarter: 2012Q1

REPORT INFORMATION
  Report Type: 
  Country: None (occurrence: None)
  Receive Date: 20120103
  Receipt Date: 20111223
  Transmission Date: 20120608
  Serious: No
  Sender: FDA-Public Use
  Company Number: US-BAYER-2011-123748

PATIENT
  Age: 60 Year
  Sex: Male
  Weight: 125 kg

DRUGS (2)
  1. ALEVE (CAPLET) [Suspect]
     Indication: ANALGESIC THERAPY
     Dosage: 2 DF, BID
     Dates: start: 20111101, end: 20111210
  2. AVODART [Concomitant]

REACTIONS (2)
  - OEDEMA PERIPHERAL [None]
  - NO ADVERSE EVENT [None]
